FAERS Safety Report 16162158 (Version 3)
Quarter: 2019Q2

REPORT INFORMATION
  Report Type: Spontaneous
  Country: DE (occurrence: DE)
  Receive Date: 20190405
  Receipt Date: 20190527
  Transmission Date: 20190711
  Serious: Yes (Other)
  Sender: FDA-Public Use
  Company Number: DE-SA-2019SA090916

PATIENT
  Age: 38 Year
  Sex: Female

DRUGS (9)
  1. BACLOFEN. [Concomitant]
     Active Substance: BACLOFEN
     Indication: MUSCLE SPASTICITY
     Dosage: 10 MG, UNK
     Route: 048
     Dates: start: 2015
  2. L-THYROXIN [LEVOTHYROXINE] [Concomitant]
     Active Substance: LEVOTHYROXINE SODIUM
     Indication: HYPOTHYROIDISM
     Dosage: 112 UG, UNK
     Route: 048
     Dates: start: 2015
  3. LEMTRADA [Suspect]
     Active Substance: ALEMTUZUMAB
     Dosage: 12 MG, QD
     Route: 042
     Dates: start: 20170822, end: 20170824
  4. BIOTIN [Concomitant]
     Active Substance: BIOTIN
     Indication: ALOPECIA
     Dosage: 5 MG
     Route: 048
     Dates: start: 201611
  5. TEBONIN INTENS [Concomitant]
     Active Substance: GINKGO
     Indication: PROMOTION OF PERIPHERAL CIRCULATION
     Dosage: 240 MG, QD
     Route: 048
     Dates: start: 2015
  6. ZINK [ZINC SULFATE] [Concomitant]
     Indication: ALOPECIA
     Dosage: 40 MG, UNK
     Route: 048
     Dates: start: 201611
  7. VIGANTOLETTEN [Concomitant]
     Active Substance: CHOLECALCIFEROL
     Indication: VITAMIN SUPPLEMENTATION
     Dosage: 1000 IU, UNK
     Route: 048
     Dates: start: 2015
  8. LEMTRADA [Suspect]
     Active Substance: ALEMTUZUMAB
     Indication: MULTIPLE SCLEROSIS
     Dosage: 12 MG, QD
     Route: 042
     Dates: start: 20160815, end: 20160819
  9. VITAMIN B12 [Concomitant]
     Active Substance: CYANOCOBALAMIN
     Indication: VITAMIN SUPPLEMENTATION
     Dosage: 1000 UG, UNK
     Route: 048
     Dates: start: 2015

REACTIONS (5)
  - Autoimmune thyroiditis [Recovered/Resolved]
  - Immune thrombocytopenic purpura [Recovered/Resolved]
  - Gingival bleeding [Recovered/Resolved]
  - Haematoma [Recovered/Resolved]
  - Petechiae [Recovered/Resolved]

NARRATIVE: CASE EVENT DATE: 201810
